FAERS Safety Report 7600920-0 (Version None)
Quarter: 2011Q3

REPORT INFORMATION
  Report Type: 
  Country: None (occurrence: None)
  Receive Date: 20110706
  Receipt Date: 20110706
  Transmission Date: 20111222
  Serious: No
  Sender: FDA-Public Use
  Company Number: None

PATIENT
  Sex: Female

DRUGS (1)
  1. LITHIUM CARBONATE CAP [Suspect]
     Indication: BIPOLAR DISORDER
     Dosage: 300 MG ONCE DAY ORAL
     Route: 048
     Dates: start: 20110601

REACTIONS (3)
  - DYSGEUSIA [None]
  - GLOSSODYNIA [None]
  - TONGUE DISORDER [None]
